FAERS Safety Report 6833561-3 (Version None)
Quarter: 2010Q3

REPORT INFORMATION
  Report Type: 
  Country: None (occurrence: None)
  Receive Date: 20100712
  Receipt Date: 20070328
  Transmission Date: 20110219
  Serious: No
  Sender: FDA-Public Use
  Company Number: US-PFIZER INC-2007025659

PATIENT
  Sex: Male
  Weight: 122.47 kg

DRUGS (4)
  1. CHANTIX [Suspect]
     Indication: SMOKING CESSATION THERAPY
     Dates: start: 20070324
  2. AVANDIA [Concomitant]
     Indication: TYPE 2 DIABETES MELLITUS
  3. METFORMIN HCL [Concomitant]
     Indication: TYPE 2 DIABETES MELLITUS
  4. VERAPAMIL [Concomitant]
     Indication: HYPERTENSION

REACTIONS (3)
  - ABNORMAL DREAMS [None]
  - INSOMNIA [None]
  - NAUSEA [None]
